FAERS Safety Report 12857410 (Version 1)
Quarter: 2016Q4

REPORT INFORMATION
  Report Type: Spontaneous
  Country: CN (occurrence: CN)
  Receive Date: 20161018
  Receipt Date: 20161018
  Transmission Date: 20170207
  Serious: Yes (Other)
  Sender: FDA-Public Use
  Company Number: CN-PFIZER INC-2016479256

PATIENT
  Age: 52 Year
  Sex: Male
  Weight: 52 kg

DRUGS (2)
  1. VFEND [Suspect]
     Active Substance: VORICONAZOLE
     Indication: SEPTIC SHOCK
     Dosage: 200 MG, 2X/DAY
     Route: 041
     Dates: start: 20160730, end: 20160801
  2. IMIPENEM AND CILASTATIN [Concomitant]
     Active Substance: CILASTATIN SODIUM\IMIPENEM
     Indication: SEPTIC SHOCK
     Dosage: 1 G, 2X/DAY
     Route: 041
     Dates: start: 20160730, end: 20160801

REACTIONS (4)
  - Slow response to stimuli [Recovering/Resolving]
  - Sluggishness [Recovering/Resolving]
  - Mental disorder [Recovering/Resolving]
  - Somnolence [Recovering/Resolving]

NARRATIVE: CASE EVENT DATE: 20160801
